FAERS Safety Report 8376443-0 (Version None)
Quarter: 2012Q2

REPORT INFORMATION
  Report Type: 
  Country: None (occurrence: None)
  Receive Date: 20120517
  Receipt Date: 20120502
  Transmission Date: 20120825
  Serious: Yes (Other)
  Sender: FDA-Public Use
  Company Number: 2012SGN00152

PATIENT
  Age: 32 Year
  Sex: Male

DRUGS (1)
  1. ADCETRIS [Suspect]
     Indication: HODGKIN'S DISEASE
     Dosage: 164.7 MG, Q21D
     Dates: start: 20111221, end: 20120221

REACTIONS (4)
  - PNEUMONIA PRIMARY ATYPICAL [None]
  - PYREXIA [None]
  - PNEUMONITIS [None]
  - DYSPNOEA [None]
